FAERS Safety Report 15592586 (Version 3)
Quarter: 2018Q4

REPORT INFORMATION
  Report Type: Spontaneous
  Country: US (occurrence: US)
  Receive Date: 20181106
  Receipt Date: 20181226
  Transmission Date: 20190205
  Serious: No
  Sender: FDA-Public Use
  Company Number: US-PFIZER INC-2018444362

PATIENT
  Age: 39 Year
  Sex: Male
  Weight: 90.72 kg

DRUGS (4)
  1. OMEPRAZOLE. [Concomitant]
     Active Substance: OMEPRAZOLE
     Indication: GASTROOESOPHAGEAL REFLUX DISEASE
     Dosage: 20 MG, 1X/DAY
  2. TESTOSTERONE CIPIONATE [Suspect]
     Active Substance: TESTOSTERONE
     Indication: BLOOD TESTOSTERONE DECREASED
     Dosage: 0.95 MG, WEEKLY
     Dates: start: 201603
  3. TESTOSTERONE CIPIONATE [Suspect]
     Active Substance: TESTOSTERONE
     Indication: HYPOGONADISM
     Dosage: 0.95 ML, WEEKLY ( 200MG/ML .95ML EACH WEEK INTRAMUSCULAR   )
     Route: 030
     Dates: start: 20181015, end: 20181015
  4. TESTOSTERONE CIPIONATE [Suspect]
     Active Substance: TESTOSTERONE
     Dosage: 0.95 ML, WEEKLY
     Route: 030
     Dates: start: 20180416

REACTIONS (5)
  - Agitation [Recovered/Resolved]
  - Feeling abnormal [Recovered/Resolved]
  - Blood testosterone increased [Unknown]
  - Irritability [Recovered/Resolved]
  - Aggression [Unknown]

NARRATIVE: CASE EVENT DATE: 20181016
